FAERS Safety Report 18959189 (Version 6)
Quarter: 2023Q2

REPORT INFORMATION
  Report Type: Report from Study
  Country: CA (occurrence: CA)
  Receive Date: 20210302
  Receipt Date: 20230530
  Transmission Date: 20230721
  Serious: Yes (Other)
  Sender: FDA-Public Use
  Company Number: PHHY2015CA088893

PATIENT
  Age: 54 Year
  Sex: Male

DRUGS (10)
  1. SANDOSTATIN LAR DEPOT [Suspect]
     Active Substance: OCTREOTIDE ACETATE
     Indication: Acromegaly
     Dosage: 20 MG QMO (EVERY 4 WEEKS)
     Route: 030
     Dates: start: 20060810
  2. SANDOSTATIN LAR DEPOT [Suspect]
     Active Substance: OCTREOTIDE ACETATE
     Dosage: 10 MG, Q2W
     Route: 030
     Dates: start: 20060810
  3. SANDOSTATIN LAR DEPOT [Suspect]
     Active Substance: OCTREOTIDE ACETATE
     Dosage: 20 MG, Q3W (EVERY THREE WEEK)
     Route: 030
     Dates: start: 20120628
  4. SANDOSTATIN LAR DEPOT [Suspect]
     Active Substance: OCTREOTIDE ACETATE
     Dosage: 20 MG, Q3W (EVERY THREE WEEK)
     Route: 030
     Dates: start: 20160209
  5. SOMAVERT [Concomitant]
     Active Substance: PEGVISOMANT
     Indication: Product used for unknown indication
     Dosage: 1 DOSAGE FORM, QD (STRENGTH:10MG)
     Route: 058
  6. SOMAVERT [Concomitant]
     Active Substance: PEGVISOMANT
     Dosage: 1 DOSAGE FORM, QD (STRENGTH:15MG)
     Route: 058
  7. LEVOTHYROXINE [Concomitant]
     Active Substance: LEVOTHYROXINE
     Indication: Product used for unknown indication
     Dosage: 10 MG, QID
     Route: 065
  8. CORTISONE [Concomitant]
     Active Substance: CORTISONE
     Indication: Product used for unknown indication
     Dosage: UNK
     Route: 030
  9. LEVOTHYROXINE [Concomitant]
     Active Substance: LEVOTHYROXINE
     Indication: Product used for unknown indication
     Dosage: 1 DF, QD
     Route: 048
  10. LIPITOR [Concomitant]
     Active Substance: ATORVASTATIN CALCIUM
     Indication: Product used for unknown indication
     Dosage: 1 DF, QD
     Route: 048

REACTIONS (35)
  - Retinal detachment [Unknown]
  - Glaucoma [Unknown]
  - Headache [Unknown]
  - Intraocular pressure increased [Unknown]
  - Influenza like illness [Unknown]
  - Blood pressure diastolic increased [Unknown]
  - Rhinorrhoea [Unknown]
  - Cough [Unknown]
  - Body temperature decreased [Unknown]
  - Chills [Unknown]
  - Somnolence [Unknown]
  - Social avoidant behaviour [Unknown]
  - Pain [Unknown]
  - Anger [Unknown]
  - Frustration tolerance decreased [Unknown]
  - Sleep disorder [Unknown]
  - Insomnia [Unknown]
  - Arthralgia [Unknown]
  - Pain in extremity [Unknown]
  - Blood growth hormone increased [Unknown]
  - Sluggishness [Unknown]
  - Blood cholesterol increased [Unknown]
  - Pain in jaw [Recovering/Resolving]
  - Musculoskeletal pain [Unknown]
  - Hypoaesthesia oral [Recovering/Resolving]
  - Fatigue [Unknown]
  - Heart rate decreased [Unknown]
  - Asthenia [Unknown]
  - Decreased appetite [Unknown]
  - Blood pressure increased [Unknown]
  - Blood pressure systolic increased [Unknown]
  - Needle issue [Unknown]
  - Product prescribing error [Unknown]
  - Inappropriate schedule of product administration [Unknown]
  - Overdose [Unknown]

NARRATIVE: CASE EVENT DATE: 20150726
